FAERS Safety Report 25915040 (Version 1)
Quarter: 2025Q4

REPORT INFORMATION
  Report Type: Report from Study
  Country: US (occurrence: US)
  Receive Date: 20251013
  Receipt Date: 20251013
  Transmission Date: 20260118
  Serious: No
  Sender: TG THERAPEUTICS
  Company Number: US-TG THERAPEUTICS INC.-TGT005864

PATIENT

DRUGS (2)
  1. UBLITUXIMAB [Suspect]
     Active Substance: UBLITUXIMAB
     Indication: Multiple sclerosis
     Dosage: 150 MILLIGRAM
     Route: 042
     Dates: start: 20230613, end: 20230613
  2. UBLITUXIMAB [Suspect]
     Active Substance: UBLITUXIMAB
     Dosage: 450 MILLIGRAM
     Route: 042
     Dates: start: 20250415, end: 20250415

REACTIONS (10)
  - Loss of control of legs [Unknown]
  - Mental fatigue [Unknown]
  - Depressed mood [Unknown]
  - Fall [Unknown]
  - Muscular weakness [Unknown]
  - Anal incontinence [Unknown]
  - Diabetic complication [Unknown]
  - Visual impairment [Unknown]
  - Urinary tract infection [Unknown]
  - Pain in extremity [Unknown]

NARRATIVE: CASE EVENT DATE: 20250101
